FAERS Safety Report 18223461 (Version 1)
Quarter: 2020Q3

REPORT INFORMATION
  Report Type: Spontaneous
  Country: US (occurrence: US)
  Receive Date: 20200902
  Receipt Date: 20200902
  Transmission Date: 20201103
  Serious: Yes (Other)
  Sender: FDA-Public Use
  Company Number: US-TEIKOKU PHARMA USA-TPU2020-00741

PATIENT
  Sex: Female
  Weight: 49.94 kg

DRUGS (3)
  1. LIDOCAINE PATCH [Suspect]
     Active Substance: LIDOCAINE
     Indication: OSTEOARTHRITIS
  2. LIDOCAINE PATCH [Suspect]
     Active Substance: LIDOCAINE
     Indication: MYOPATHY
     Dosage: 1 PATCH ACROSS THE NECK, AND IF NEEDED AN ADDITIONAL PATCH ON HER LOWER BACK
     Route: 061
  3. LIDOCAINE PATCH [Suspect]
     Active Substance: LIDOCAINE
     Indication: STENOSIS

REACTIONS (4)
  - Parkinson^s disease [Unknown]
  - Incorrect product administration duration [Unknown]
  - Product availability issue [Not Recovered/Not Resolved]
  - Insurance issue [Not Recovered/Not Resolved]

NARRATIVE: CASE EVENT DATE: 2017
